FAERS Safety Report 4503931-7 (Version None)
Quarter: 2004Q3

REPORT INFORMATION
  Report Type: 
  Country: None (occurrence: None)
  Receive Date: 20040928
  Receipt Date: 20040616
  Transmission Date: 20050211
  Serious: No
  Sender: FDA-Public Use
  Company Number: 04P-163-0264013-00

PATIENT
  Age: 50 Year
  Sex: Female
  Weight: 79.3795 kg

DRUGS (4)
  1. HUMIRA [Suspect]
     Indication: PSORIATIC ARTHROPATHY
     Dosage: 40 MG 1 IN 2 WK SUBCUTANEOUS
     Route: 058
     Dates: start: 20030901
  2. LANSOPRAZOLE [Concomitant]
  3. FLUOXETINE HYDROCHLORIDE [Concomitant]
  4. MAXZIDE [Concomitant]

REACTIONS (3)
  - DRY SKIN [None]
  - PRURITUS [None]
  - RASH PAPULAR [None]
